FAERS Safety Report 12520857 (Version 7)
Quarter: 2018Q1

REPORT INFORMATION
  Report Type: Spontaneous
  Country: US (occurrence: US)
  Receive Date: 20160701
  Receipt Date: 20180207
  Transmission Date: 20180508
  Serious: Yes (Other)
  Sender: FDA-Public Use
  Company Number: US-PFIZER INC-2016320631

PATIENT
  Age: 66 Year
  Sex: Female

DRUGS (4)
  1. XELJANZ [Suspect]
     Active Substance: TOFACITINIB CITRATE
     Dosage: 5 MG, UNK
  2. XELJANZ [Suspect]
     Active Substance: TOFACITINIB CITRATE
     Indication: ARTHRITIS
     Dosage: 5 MG, UNK
     Dates: end: 201305
  3. XELJANZ [Suspect]
     Active Substance: TOFACITINIB CITRATE
     Dosage: 5 MG, 2X/DAY
     Dates: start: 201506, end: 20160728
  4. METHOTREXATE. [Concomitant]
     Active Substance: METHOTREXATE
     Indication: ARTHRITIS
     Dosage: UNK
     Dates: end: 20160728

REACTIONS (12)
  - Increased appetite [Unknown]
  - Arthritis [Unknown]
  - Disease progression [Unknown]
  - Respiratory tract infection [Unknown]
  - Asthma [Unknown]
  - Infection [Unknown]
  - Bronchitis [Recovered/Resolved]
  - Weight increased [Unknown]
  - Cough [Not Recovered/Not Resolved]
  - Malaise [Unknown]
  - Rash [Unknown]
  - Immune system disorder [Not Recovered/Not Resolved]
